FAERS Safety Report 8249975-3 (Version None)
Quarter: 2012Q1

REPORT INFORMATION
  Report Type: 
  Country: None (occurrence: None)
  Receive Date: 20120327
  Receipt Date: 20120319
  Transmission Date: 20120608
  Serious: Yes (Other)
  Sender: FDA-Public Use
  Company Number: 2012SP015027

PATIENT
  Age: 24 Year
  Sex: Female
  Weight: 50 kg

DRUGS (1)
  1. NEXPLANON [Suspect]
     Indication: CONTRACEPTION
     Dosage: 68 MG;SBDE
     Route: 059
     Dates: start: 20120217, end: 20120302

REACTIONS (4)
  - URTICARIA [None]
  - IMPLANT SITE URTICARIA [None]
  - RASH GENERALISED [None]
  - RASH PRURITIC [None]
